FAERS Safety Report 14448367 (Version 2)
Quarter: 2018Q1

REPORT INFORMATION
  Report Type: Spontaneous
  Country: US (occurrence: US)
  Receive Date: 20180126
  Receipt Date: 20180208
  Transmission Date: 20180509
  Serious: Yes (Other)
  Sender: FDA-Public Use
  Company Number: US-BAUSCH-BL-2018-001953

PATIENT
  Age: 50 Year
  Sex: Female

DRUGS (2)
  1. ADDYI [Suspect]
     Active Substance: FLIBANSERIN
     Indication: LIBIDO DECREASED
     Dosage: SPRING 2017, BY MOUTH
     Route: 048
     Dates: start: 2017, end: 2017
  2. AUGMENTIN [Suspect]
     Active Substance: AMOXICILLIN\CLAVULANATE POTASSIUM
     Indication: SINUSITIS
     Route: 048
     Dates: start: 20171201, end: 20171205

REACTIONS (6)
  - Fatigue [Recovering/Resolving]
  - Drug-induced liver injury [Recovering/Resolving]
  - Sinusitis [Recovering/Resolving]
  - Abdominal pain [Recovering/Resolving]
  - Vertigo [Not Recovered/Not Resolved]
  - Nasopharyngitis [Recovered/Resolved]

NARRATIVE: CASE EVENT DATE: 2017
